FAERS Safety Report 4624745-3 (Version None)
Quarter: 2005Q1

REPORT INFORMATION
  Report Type: 
  Country: None (occurrence: None)
  Receive Date: 20050107
  Receipt Date: 20041020
  Transmission Date: 20050727
  Serious: No
  Sender: FDA-Public Use
  Company Number: 235294K04USA

PATIENT
  Age: 50 Year
  Sex: Female

DRUGS (2)
  1. REBIF [Suspect]
     Indication: MULTIPLE SCLEROSIS
     Dosage: 44 MCG, 3 IN 1 WEEKS, SUBCUTANEOUS
     Route: 058
     Dates: start: 20031231
  2. MOTRIN [Suspect]
     Dates: end: 20040101

REACTIONS (4)
  - HYPERTONIA [None]
  - MUSCLE SPASTICITY [None]
  - PRURITUS [None]
  - URTICARIA [None]
